FAERS Safety Report 5668336-4 (Version None)
Quarter: 2008Q1

REPORT INFORMATION
  Report Type: 
  Country: None (occurrence: None)
  Receive Date: 20080315
  Receipt Date: 20080220
  Transmission Date: 20080703
  Serious: No
  Sender: FDA-Public Use
  Company Number: US-ABBOTT-08P-163-0439314-00

PATIENT
  Sex: Male
  Weight: 68.1 kg

DRUGS (8)
  1. HUMIRA [Suspect]
     Indication: CROHN'S DISEASE
     Route: 058
     Dates: start: 20080128
  2. OPIUM ALKALOIDS TOTAL [Concomitant]
     Indication: PAIN
  3. CODEINE SUL TAB [Concomitant]
     Indication: PAIN
  4. MORPHINE [Concomitant]
     Indication: BACK PAIN
  5. HYDROCODONE BITARTRATE [Concomitant]
     Indication: BACK PAIN
  6. TOPIRAMATE [Concomitant]
     Indication: TREMOR
  7. OMEPRAZOLE [Concomitant]
     Indication: DYSPEPSIA
  8. INDOMETHACIN [Concomitant]
     Indication: GOUT

REACTIONS (2)
  - DRY SKIN [None]
  - SKIN ULCER [None]
